FAERS Safety Report 7230285-8 (Version None)
Quarter: 2011Q1

REPORT INFORMATION
  Report Type: 
  Country: None (occurrence: None)
  Receive Date: 20110118
  Receipt Date: 20110113
  Transmission Date: 20110831
  Serious: Yes (Other)
  Sender: FDA-Public Use
  Company Number: US-PFIZER INC-2011009459

PATIENT
  Sex: Female
  Weight: 63.492 kg

DRUGS (2)
  1. CHANTIX [Suspect]
     Indication: SMOKING CESSATION THERAPY
     Dosage: 1 MG, 2X/DAY
     Route: 048
     Dates: start: 20101023, end: 20101127
  2. CITALOPRAM [Concomitant]
     Dosage: UNK
     Dates: end: 20110110

REACTIONS (8)
  - ANXIETY [None]
  - FIBRIN D DIMER NORMAL [None]
  - SLEEP DISORDER [None]
  - NAUSEA [None]
  - RED BLOOD CELL COUNT DECREASED [None]
  - ASTHENIA [None]
  - DYSPNOEA [None]
  - HYPERVENTILATION [None]
